FAERS Safety Report 4795981-0 (Version None)
Quarter: 2005Q4

REPORT INFORMATION
  Report Type: 
  Country: None (occurrence: None)
  Receive Date: 20051012
  Receipt Date: 20050824
  Transmission Date: 20060501
  Serious: Yes (Disabling, Other)
  Sender: FDA-Public Use
  Company Number: GB-MERCK-0508GBR00144

PATIENT
  Age: 78 Year
  Sex: Female
  Weight: 58 kg

DRUGS (5)
  1. FOSAMAX [Suspect]
     Route: 048
     Dates: start: 20031201, end: 20050101
  2. ALBUTEROL SULFATE [Concomitant]
     Indication: ASTHMA
     Route: 065
     Dates: start: 19800101
  3. BECLOMETHASONE DIPROPIONATE [Concomitant]
     Indication: ASTHMA
     Route: 055
     Dates: start: 19800101
  4. BETAHISTINE HYDROCHLORIDE [Concomitant]
     Indication: DIZZINESS
     Route: 065
     Dates: start: 20020101
  5. DESLORATADINE [Concomitant]
     Indication: PRURITUS
     Route: 065
     Dates: start: 20050101

REACTIONS (5)
  - BASAL CELL CARCINOMA [None]
  - BONE PAIN [None]
  - DYSPHONIA [None]
  - HAEMATOCHEZIA [None]
  - SKIN LESION [None]
